FAERS Safety Report 13700880 (Version 1)
Quarter: 2017Q2

REPORT INFORMATION
  Report Type: Spontaneous
  Country: US (occurrence: US)
  Receive Date: 20170628
  Receipt Date: 20170628
  Transmission Date: 20170830
  Serious: Yes (Disabling)
  Sender: FDA-Public Use
  Company Number: None

PATIENT
  Age: 38 Year
  Sex: Female
  Weight: 51.75 kg

DRUGS (5)
  1. XANAX [Suspect]
     Active Substance: ALPRAZOLAM
     Indication: ANXIETY
     Dosage: ?          OTHER STRENGTH:MG;QUANTITY:60 TABLET(S);?
     Route: 048
     Dates: start: 20080801, end: 20110301
  2. VITAMIN D [Concomitant]
     Active Substance: CHOLECALCIFEROL
  3. FISH OIL [Concomitant]
     Active Substance: FISH OIL
  4. ALLEGRA [Concomitant]
     Active Substance: FEXOFENADINE HYDROCHLORIDE
  5. KLONIPIN [Suspect]
     Active Substance: CLONAZEPAM
     Indication: ANXIETY
     Dosage: ?          OTHER STRENGTH:MG;QUANTITY:60 TABLET(S);?
     Route: 048
     Dates: start: 20080801, end: 20110301

REACTIONS (11)
  - Withdrawal syndrome [None]
  - Muscle spasms [None]
  - Palpitations [None]
  - Pain [None]
  - Migraine [None]
  - Suicidal ideation [None]
  - Agoraphobia [None]
  - Vision blurred [None]
  - Cognitive disorder [None]
  - Myalgia [None]
  - Gastrointestinal disorder [None]

NARRATIVE: CASE EVENT DATE: 20110311
